FAERS Safety Report 8971569 (Version 1)
Quarter: 2012Q4

REPORT INFORMATION
  Report Type: 
  Country: US (occurrence: US)
  Receive Date: 20121217
  Receipt Date: 20121217
  Transmission Date: 20130627
  Serious: Yes (Other)
  Sender: FDA-Public Use
  Company Number: US-ELI_LILLY_AND_COMPANY-US201212002270

PATIENT
  Age: 69 Year
  Sex: Female
  Weight: 93.42 kg

DRUGS (17)
  1. BYDUREON [Suspect]
     Indication: TYPE 2 DIABETES MELLITUS
     Dosage: 2 mg, weekly (1/W)
     Route: 058
     Dates: start: 20121019
  2. METFORMIN [Concomitant]
     Indication: TYPE 2 DIABETES MELLITUS
     Dosage: 1000 mg, bid
     Route: 048
  3. GLIPIZIDE [Concomitant]
     Indication: TYPE 2 DIABETES MELLITUS
     Dosage: 10 mg, bid
     Route: 048
  4. DIOVAN HCT [Concomitant]
     Dosage: 1 DF, qd
     Route: 048
  5. RESTASIS [Concomitant]
     Indication: EYE LUBRICATION THERAPY
     Dosage: .05 %, bid
     Route: 047
  6. OMEPRAZOLE [Concomitant]
     Dosage: 20 mg, qd
     Route: 048
  7. ATENOLOL [Concomitant]
     Dosage: 50 mg, bid
     Route: 048
  8. SYNTHROID [Concomitant]
     Dosage: 75 ug, qd
     Route: 048
  9. LIPITOR [Concomitant]
     Dosage: 10 mg, qd
     Route: 048
  10. ASPIRIN [Concomitant]
     Dosage: 81 mg, qd
     Route: 048
  11. INDERAL [Concomitant]
     Dosage: 30 mg, qd
     Route: 048
  12. VITAMIN B12 [Concomitant]
     Dosage: 250 ug, qd
     Route: 048
  13. FISH OIL [Concomitant]
     Dosage: 1000 mg, tid
     Route: 048
  14. VITAMIN D [Concomitant]
     Dosage: 2000 u, qd
     Route: 048
  15. CRANBERRY [Concomitant]
     Dosage: 1 DF, qd
     Route: 048
  16. ADVAIR DISKUS [Concomitant]
     Dosage: 1 DF, unknown
     Route: 055
  17. ALBUTEROL [Concomitant]
     Dosage: 2 DF, prn
     Route: 055

REACTIONS (3)
  - Cardiac flutter [Not Recovered/Not Resolved]
  - Throat irritation [Not Recovered/Not Resolved]
  - Musculoskeletal discomfort [Not Recovered/Not Resolved]
